FAERS Safety Report 9919318 (Version 1)
Quarter: 2014Q1

REPORT INFORMATION
  Report Type: Spontaneous
  Country: US (occurrence: US)
  Receive Date: 20140224
  Receipt Date: 20140224
  Transmission Date: 20141002
  Serious: Yes (Other)
  Sender: FDA-Public Use
  Company Number: US-SA-2014SA020824

PATIENT
  Age: 53 Year
  Sex: Female

DRUGS (1)
  1. ALLEGRA [Suspect]
     Indication: UPPER-AIRWAY COUGH SYNDROME
     Dosage: DOSAGE: 6 TABLETS THREE TIMES A DAY
     Route: 048

REACTIONS (1)
  - Gastric ulcer [Unknown]
